FAERS Safety Report 5328045-8 (Version None)
Quarter: 2007Q2

REPORT INFORMATION
  Report Type: 
  Country: None (occurrence: None)
  Receive Date: 20070514
  Receipt Date: 20070502
  Transmission Date: 20071010
  Serious: Yes (Hospitalization)
  Sender: FDA-Public Use
  Company Number: 2007AL001792

PATIENT
  Age: 55 Year
  Sex: Male

DRUGS (5)
  1. METFORMIN HYDROCHLORIDE [Suspect]
     Indication: DIABETES MELLITUS NON-INSULIN-DEPENDENT
     Dosage: 2 GR; QD;PO
     Route: 048
  2. NIFEDIPINE [Concomitant]
  3. CAPTOPRIL [Concomitant]
  4. HYDROCHLOROTHIAZIDE [Concomitant]
  5. GLYBURIDE [Concomitant]

REACTIONS (8)
  - BLOOD CREATININE INCREASED [None]
  - DRUG LEVEL ABOVE THERAPEUTIC [None]
  - HAEMODIALYSIS [None]
  - HYPOTENSION [None]
  - LACTIC ACIDOSIS [None]
  - MENTAL STATUS CHANGES [None]
  - RESPIRATORY DISTRESS [None]
  - VOMITING [None]
